FAERS Safety Report 4513267-6 (Version None)
Quarter: 2004Q4

REPORT INFORMATION
  Report Type: 
  Country: None (occurrence: None)
  Receive Date: 20041130
  Receipt Date: 20041124
  Transmission Date: 20050328
  Serious: Yes (Hospitalization)
  Sender: FDA-Public Use
  Company Number: GB-ROCHE-387142

PATIENT
  Age: 52 Year
  Sex: Female
  Weight: 48.2 kg

DRUGS (4)
  1. CAPECITABINE [Suspect]
     Dosage: TAKEN ON DAYS 1-14 OF 21 DAY CYCLE. CYCLE 3 OF 6.
     Route: 048
     Dates: start: 20040924, end: 20041115
  2. CAPECITABINE [Suspect]
     Dosage: TAKEN ON DAYS 1-14 OF 21 DAY CYCLE. CYCLE 3 OF 6.
     Route: 048
     Dates: start: 20041119
  3. EPIRUBICIN [Suspect]
     Dosage: BOLUS GIVEN ON DAY 1 OF A 21 DAY CYCLE. CYCLE 3 OF 6.
     Route: 042
     Dates: start: 20040924
  4. DOCETAXEL [Suspect]
     Dosage: GIVEN WEEKLY FOR 5 WEEKS FOLLOWED BY 1 WEEK REST.  CYCLE 3 OF 6.
     Route: 042
     Dates: start: 20040924

REACTIONS (3)
  - CHILLS [None]
  - DIARRHOEA [None]
  - PYREXIA [None]
